FAERS Safety Report 17020551 (Version 1)
Quarter: 2019Q4

REPORT INFORMATION
  Report Type: Report from Study
  Country: US (occurrence: US)
  Receive Date: 20191112
  Receipt Date: 20191112
  Transmission Date: 20200122
  Serious: Yes (Hospitalization, Other)
  Sender: FDA-Public Use
  Company Number: US-GLAXOSMITHKLINE-2018-TSO1668-US

PATIENT
  Age: 54 Year
  Sex: Female

DRUGS (1)
  1. NIRAPARIB [Suspect]
     Active Substance: NIRAPARIB
     Indication: PRODUCT USED FOR UNKNOWN INDICATION
     Dosage: 200 MG, QD (2 CAPUSLES BY MOUTH ONCE DAILY AT THE SAME TIME EACH  DAILY (PREFERABLY IN THE EVENING)
     Route: 048
     Dates: start: 20181010

REACTIONS (19)
  - Malignant neoplasm progression [Unknown]
  - Back pain [Not Recovered/Not Resolved]
  - Frustration tolerance decreased [Unknown]
  - Communication disorder [Unknown]
  - Dry mouth [Not Recovered/Not Resolved]
  - Product dose omission [Unknown]
  - Irritability [Unknown]
  - Headache [Unknown]
  - Myalgia [Unknown]
  - Nausea [Not Recovered/Not Resolved]
  - Anger [Unknown]
  - Rhinorrhoea [Unknown]
  - Depression [Unknown]
  - Insomnia [Not Recovered/Not Resolved]
  - Constipation [Unknown]
  - Arthralgia [Unknown]
  - Vision blurred [Not Recovered/Not Resolved]
  - Abdominal pain [Not Recovered/Not Resolved]
  - Anxiety [Unknown]

NARRATIVE: CASE EVENT DATE: 20181105
